FAERS Safety Report 13101690 (Version 3)
Quarter: 2017Q1

REPORT INFORMATION
  Report Type: Spontaneous
  Country: KR (occurrence: KR)
  Receive Date: 20170110
  Receipt Date: 20170330
  Transmission Date: 20170428
  Serious: Yes (Other)
  Sender: FDA-Public Use
  Company Number: KR-009507513-1701KOR003676

PATIENT
  Age: 64 Year
  Sex: Male
  Weight: 64 kg

DRUGS (25)
  1. DEXAMETHASONE SODIUM PHOSPHATE. [Concomitant]
     Active Substance: DEXAMETHASONE SODIUM PHOSPHATE
     Indication: CHEMOTHERAPY
     Dosage: STRENGHT: 5MG/ML; 12 MG, ONCE
     Route: 042
     Dates: start: 20160610, end: 20160610
  2. CIMETIDINE [Concomitant]
     Active Substance: CIMETIDINE
     Indication: PREMEDICATION
     Dosage: STRENGTH: 200MG/2ML; 1 AMPULE, QD
     Route: 042
     Dates: start: 20160609, end: 20160610
  3. CIMET [Concomitant]
     Indication: PROPHYLAXIS
     Dosage: 1 TABLET (200 MG), QD
     Route: 048
     Dates: start: 20160611, end: 20160612
  4. MEGACE [Concomitant]
     Active Substance: MEGESTROL ACETATE
     Indication: DECREASED APPETITE
     Dosage: DOSE REPORTED AS 1 PK, QD
     Route: 048
     Dates: start: 20160609
  5. NEBILET [Concomitant]
     Active Substance: NEBIVOLOL
     Indication: HYPERTENSION
     Dosage: 1 TABLET, QD
     Route: 048
  6. XARELTO [Concomitant]
     Active Substance: RIVAROXABAN
     Indication: HYPERTENSION
  7. BONALING A [Concomitant]
     Indication: PROPHYLAXIS OF NAUSEA AND VOMITING
     Dosage: 1 TABLET, TID
     Route: 048
     Dates: start: 20160615, end: 20160621
  8. TYLENOL EXTENDED RELIEF CAPLETS [Concomitant]
     Active Substance: ACETAMINOPHEN
     Indication: PAIN
     Dosage: 2 TABLET (1300 MG), QD
     Route: 048
     Dates: start: 20160610, end: 20160623
  9. VINORELBINE TARTRATE. [Concomitant]
     Active Substance: VINORELBINE TARTRATE
     Indication: LUNG NEOPLASM MALIGNANT
     Dosage: 30.5 MG, ONCE, CYCLE 2, FORMULATION: 50MG/5ML
     Route: 042
     Dates: start: 20160609, end: 20160609
  10. CISPLATIN. [Concomitant]
     Active Substance: CISPLATIN
     Indication: LUNG NEOPLASM MALIGNANT
     Dosage: STRENGTH: 50MG/5ML; 91.6 MG, ONCE, CYCLE 2
     Route: 042
     Dates: start: 20160609, end: 20160609
  11. SYLCON [Concomitant]
     Indication: DYSPEPSIA
     Dosage: 1 TABLET(625 MG), TID
     Route: 048
     Dates: start: 2016
  12. ALANINE (+) ARGININE (+) CYSTEINE HYDROCHLORIDE (+) GLYCINE (+) HISTID [Concomitant]
     Indication: ASTHENIA
     Dosage: 1 BLT, QD
     Route: 042
     Dates: start: 20160609, end: 20160610
  13. EMEND (FOSAPREPITANT DIMEGLUMINE) [Suspect]
     Active Substance: FOSAPREPITANT DIMEGLUMINE
     Dosage: 150 MG, ONCE
     Route: 042
     Dates: start: 20160629, end: 20160629
  14. EMEND (FOSAPREPITANT DIMEGLUMINE) [Suspect]
     Active Substance: FOSAPREPITANT DIMEGLUMINE
     Dosage: 150 MG, ONCE
     Route: 042
     Dates: start: 20160801, end: 20160801
  15. NAVELBINE [Concomitant]
     Active Substance: VINORELBINE TARTRATE
     Indication: LUNG NEOPLASM MALIGNANT
     Dosage: STRENGTH: 50MG/5ML; 30.5 MG, ONCE, CYCLE 2
     Route: 042
     Dates: start: 20160615, end: 20160615
  16. DEXAMETHASONE SODIUM PHOSPHATE. [Concomitant]
     Active Substance: DEXAMETHASONE SODIUM PHOSPHATE
     Dosage: STRENGHT: 5MG/ML; 12 MG, BID
     Route: 042
     Dates: start: 20160611, end: 20160612
  17. ALOXI [Concomitant]
     Active Substance: PALONOSETRON HYDROCHLORIDE
     Indication: PREMEDICATION
     Dosage: 5 ML, ONCE
     Route: 042
     Dates: start: 20160609, end: 20160609
  18. CIMETIDINE [Concomitant]
     Active Substance: CIMETIDINE
     Indication: PROPHYLAXIS
     Dosage: 1 AMPULE, ONCE
     Route: 042
     Dates: start: 20160615, end: 20160615
  19. EMEND (FOSAPREPITANT DIMEGLUMINE) [Suspect]
     Active Substance: FOSAPREPITANT DIMEGLUMINE
     Indication: PROPHYLAXIS OF NAUSEA AND VOMITING
     Dosage: 150 MG, ONCE
     Route: 042
     Dates: start: 20160609, end: 20160609
  20. DEXAMETHASONE SODIUM PHOSPHATE. [Concomitant]
     Active Substance: DEXAMETHASONE SODIUM PHOSPHATE
     Indication: PREMEDICATION
     Dosage: STRENGHT: 5MG/ML; 12 MG, ONCE
     Route: 042
     Dates: start: 20160609, end: 20160609
  21. DEXAMETHASONE YUHANMEDICA [Concomitant]
     Indication: CHEMOTHERAPY
     Dosage: 8 MG, ONCE
     Route: 048
     Dates: start: 20160615, end: 20160615
  22. NORZYME [Concomitant]
     Indication: DYSPEPSIA
     Dosage: 457.7 MG, TID
     Route: 048
     Dates: start: 2016
  23. PAN B COMP [Concomitant]
     Indication: ASTHENIA
     Dosage: 1 AMPULE, QD
     Route: 042
     Dates: start: 20160609, end: 20160610
  24. XARELTO [Concomitant]
     Active Substance: RIVAROXABAN
     Indication: PROPHYLAXIS
     Dosage: 1 TABLET (20 MG), QD
     Route: 048
     Dates: start: 20160610
  25. ALMAGEL (ALMAGATE) [Concomitant]
     Indication: PROPHYLAXIS OF NAUSEA AND VOMITING
     Dosage: DOSE REPORTED AS 1 PK, QID
     Route: 048
     Dates: start: 20160610, end: 20160623

REACTIONS (4)
  - Pericardial effusion [Unknown]
  - Fall [Recovered/Resolved]
  - Dizziness [Recovering/Resolving]
  - Oedema peripheral [Recovered/Resolved]

NARRATIVE: CASE EVENT DATE: 20160622
